FAERS Safety Report 11962456 (Version 2)
Quarter: 2016Q1

REPORT INFORMATION
  Report Type: Spontaneous
  Country: IN (occurrence: IN)
  Receive Date: 20160126
  Receipt Date: 20160203
  Transmission Date: 20160526
  Serious: Yes (Death)
  Sender: FDA-Public Use
  Company Number: IN-WATSON-2016-01381

PATIENT
  Age: 14 Year
  Sex: Female
  Weight: 25 kg

DRUGS (7)
  1. SUCCINYLCHOLINE CHLORIDE. [Interacting]
     Active Substance: SUCCINYLCHOLINE CHLORIDE
     Indication: INDUCTION OF ANAESTHESIA
     Dosage: 1.5 MG/KG, UNKNOWN
     Route: 042
  2. ISOFLURANE. [Concomitant]
     Active Substance: ISOFLURANE
     Indication: ANAESTHESIA
     Dosage: UNK
     Route: 065
  3. THIOPENTONE SODIUM [Concomitant]
     Active Substance: THIOPENTAL SODIUM
     Indication: INDUCTION OF ANAESTHESIA
     Dosage: 5 MG/KG, UNKNOWN
     Route: 042
  4. POLIDOCANOL [Concomitant]
     Active Substance: POLIDOCANOL
     Indication: SCLEROTHERAPY
     Dosage: UNK
     Route: 065
  5. PROPRANOLOL [Suspect]
     Active Substance: PROPRANOLOL\PROPRANOLOL HYDROCHLORIDE
     Indication: PRODUCT USED FOR UNKNOWN INDICATION
     Dosage: 40 MG, DAILY
     Route: 048
  6. NITROUS OXIDE W/OXYGEN [Concomitant]
     Active Substance: NITROUS OXIDE\OXYGEN
     Indication: ANAESTHESIA
     Dosage: UNK
     Route: 065
  7. FENTANYL. [Concomitant]
     Active Substance: FENTANYL
     Indication: INDUCTION OF ANAESTHESIA
     Dosage: 1.5 ?G/KG, UNKNOWN
     Route: 042

REACTIONS (4)
  - Cardiac arrest [Fatal]
  - Hyperkalaemia [Fatal]
  - Drug interaction [Fatal]
  - Temporomandibular joint syndrome [Recovered/Resolved]
